FAERS Safety Report 5303542-X (Version None)
Quarter: 2007Q2

REPORT INFORMATION
  Report Type: 
  Country: None (occurrence: None)
  Receive Date: 20070420
  Receipt Date: 20070416
  Transmission Date: 20071010
  Serious: Yes (Death, Hospitalization)
  Sender: FDA-Public Use
  Company Number: US-ROXANE LABORATORIES, INC-2007-BP-05298RO

PATIENT
  Age: 41 Year
  Sex: Male

DRUGS (5)
  1. METHADONE HCL [Suspect]
     Indication: BONE PAIN
     Dosage: 60MG TO 175MG Q8H
     Route: 048
  2. METHADONE HCL [Suspect]
     Route: 042
  3. MORPHINE SULFATE [Suspect]
     Indication: BONE PAIN
     Dosage: 800MG TO 3000MG QD
     Route: 048
  4. HYDROMORPHONE HCL [Suspect]
     Indication: DRUG THERAPY CHANGED
     Dosage: 500 MG/DAY
     Route: 042
  5. HYDROMORPHONE HCL [Suspect]
     Indication: PAIN
     Route: 048

REACTIONS (5)
  - DRUG INEFFECTIVE FOR UNAPPROVED INDICATION [None]
  - DRUG TOLERANCE [None]
  - DYSPHORIA [None]
  - PAIN [None]
  - SOMNOLENCE [None]
